FAERS Safety Report 8760915 (Version 2)
Quarter: 2012Q4

REPORT INFORMATION
  Report Type: 
  Country: DE (occurrence: DE)
  Receive Date: 20120830
  Receipt Date: 20121105
  Transmission Date: 20130627
  Serious: Yes (Disabling, Other)
  Sender: FDA-Public Use
  Company Number: DE-JNJFOC-20120813827

PATIENT
  Age: 61 Year
  Sex: Male
  Weight: 100 kg

DRUGS (11)
  1. XARELTO [Suspect]
     Indication: CEREBROVASCULAR ACCIDENT PROPHYLAXIS
     Route: 065
  2. XARELTO [Suspect]
     Indication: THROMBOSIS PROPHYLAXIS
     Route: 065
  3. XARELTO [Suspect]
     Indication: HIP ARTHROPLASTY
     Route: 065
  4. XARELTO [Suspect]
     Indication: ATRIAL FIBRILLATION
     Route: 065
  5. MARCUMAR [Concomitant]
     Route: 065
  6. IBUPROFEN [Concomitant]
     Dosage: /24hr
     Route: 065
  7. SIOFOR [Concomitant]
     Route: 065
  8. PANTOPRAZOLE [Concomitant]
     Route: 065
  9. BISOPROLOL [Concomitant]
     Route: 065
  10. RAMIPRIL [Concomitant]
     Route: 065
  11. METAMIZOL [Concomitant]
     Route: 065

REACTIONS (1)
  - Deep vein thrombosis [Unknown]
